FAERS Safety Report 11382577 (Version 1)
Quarter: 2015Q3

REPORT INFORMATION
  Report Type: Spontaneous
  Country: US (occurrence: US)
  Receive Date: 20150811
  Receipt Date: 20150811
  Transmission Date: 20151125
  Serious: No
  Sender: FDA-Public Use
  Company Number: US-ELI_LILLY_AND_COMPANY-US201005000639

PATIENT
  Age: 71 Year
  Sex: Male

DRUGS (3)
  1. ZYRTEC-D [Concomitant]
     Active Substance: CETIRIZINE HYDROCHLORIDE\PSEUDOEPHEDRINE HYDROCHLORIDE
     Indication: MULTIPLE ALLERGIES
  2. CIALIS [Suspect]
     Active Substance: TADALAFIL
     Dosage: 10 MG, UNK
  3. PERCOCET [Concomitant]
     Active Substance: ACETAMINOPHEN\OXYCODONE HYDROCHLORIDE
     Indication: BACK PAIN
     Dosage: 1 D/F, AS NEEDED

REACTIONS (4)
  - Therapeutic response decreased [Unknown]
  - Muscle spasms [Unknown]
  - Sneezing [Unknown]
  - Cough [Unknown]
